FAERS Safety Report 24439290 (Version 3)
Quarter: 2025Q1

REPORT INFORMATION
  Report Type: Spontaneous
  Country: US (occurrence: US)
  Receive Date: 20241015
  Receipt Date: 20250120
  Transmission Date: 20250409
  Serious: Yes (Hospitalization, Other)
  Sender: GLAXOSMITHKLINE
  Company Number: US-GSK-US2024AMR125103

PATIENT

DRUGS (6)
  1. NUCALA [Suspect]
     Active Substance: MEPOLIZUMAB
     Indication: Asthma
     Dosage: 100 MG, MO
     Route: 058
     Dates: start: 202402
  2. TRELEGY ELLIPTA [Suspect]
     Active Substance: FLUTICASONE FUROATE\UMECLIDINIUM BROMIDE\VILANTEROL TRIFENATATE
     Indication: Asthma
     Dosage: UNK, QD, 100/62.5/25 MCG
     Route: 048
     Dates: start: 202311
  3. PREDNISONE [Concomitant]
     Active Substance: PREDNISONE
     Indication: Product used for unknown indication
  4. ALBUTEROL [Concomitant]
     Active Substance: ALBUTEROL
     Indication: Product used for unknown indication
  5. ABILIFY [Concomitant]
     Active Substance: ARIPIPRAZOLE
     Indication: Bipolar I disorder
  6. WELLBUTRIN [Concomitant]
     Active Substance: BUPROPION HYDROCHLORIDE
     Indication: Bipolar I disorder
     Dates: start: 202111

REACTIONS (7)
  - Nasopharyngitis [Recovered/Resolved]
  - Seizure [Unknown]
  - Illness [Not Recovered/Not Resolved]
  - Migraine with aura [Unknown]
  - Asthma [Recovered/Resolved]
  - Bronchitis [Recovered/Resolved]
  - Inappropriate schedule of product administration [Unknown]

NARRATIVE: CASE EVENT DATE: 20240201
